FAERS Safety Report 6657386-7 (Version None)
Quarter: 2010Q1

REPORT INFORMATION
  Report Type: 
  Country: None (occurrence: None)
  Receive Date: 20100330
  Receipt Date: 20100323
  Transmission Date: 20100710
  Serious: Yes (Other)
  Sender: FDA-Public Use
  Company Number: US-SANOFI-AVENTIS-2010SA013026

PATIENT
  Age: 77 Year
  Sex: Male
  Weight: 93.18 kg

DRUGS (6)
  1. MULTAQ [Suspect]
     Route: 048
     Dates: start: 20090907, end: 20091207
  2. WARFARIN SODIUM [Concomitant]
     Indication: ATRIAL FIBRILLATION
  3. MONOPRIL [Concomitant]
     Indication: HYPERTENSION
     Route: 065
  4. DILTIAZEM HCL [Concomitant]
     Indication: ATRIAL FIBRILLATION
     Route: 065
  5. SIMVASTATIN [Concomitant]
     Route: 065
  6. METFORMIN HCL [Concomitant]
     Dosage: 10AM AND 5PM
     Route: 065

REACTIONS (3)
  - CARDIAC FAILURE [None]
  - DYSPNOEA [None]
  - ELECTROCARDIOGRAM QRS COMPLEX PROLONGED [None]
